FAERS Safety Report 24805491 (Version 1)
Quarter: 2025Q1

REPORT INFORMATION
  Report Type: Spontaneous
  Country: US (occurrence: None)
  Receive Date: 20250103
  Receipt Date: 20250103
  Transmission Date: 20250408
  Serious: No
  Sender: FDA-CTU
  Company Number: None

PATIENT

DRUGS (2)
  1. ENBREL [Suspect]
     Active Substance: ETANERCEPT
  2. RITUXAN [Concomitant]
     Active Substance: RITUXIMAB

REACTIONS (3)
  - Arthropathy [None]
  - Gastrointestinal motility disorder [None]
  - Therapy cessation [None]
